FAERS Safety Report 9867045 (Version 1)
Quarter: 2014Q1

REPORT INFORMATION
  Report Type: Spontaneous
  Country: US (occurrence: None)
  Receive Date: 20140203
  Receipt Date: 20140203
  Transmission Date: 20141002
  Serious: Yes (Disabling)
  Sender: FDA-Public Use
  Company Number: None

PATIENT
  Age: 32 Year
  Sex: Male
  Weight: 79.38 kg

DRUGS (1)
  1. PROPECIA [Suspect]
     Indication: ALOPECIA
     Dosage: TAKEN BY MOUTH
     Dates: start: 20090101, end: 20121201

REACTIONS (5)
  - Orgasm abnormal [None]
  - Libido decreased [None]
  - Ejaculation disorder [None]
  - Erectile dysfunction [None]
  - Penis disorder [None]
